FAERS Safety Report 22229387 (Version 2)
Quarter: 2023Q2

REPORT INFORMATION
  Report Type: Report from Study
  Country: US (occurrence: US)
  Receive Date: 20230419
  Receipt Date: 20230524
  Transmission Date: 20230721
  Serious: Yes (Other)
  Sender: FDA-Public Use
  Company Number: US-ABBVIE-4733232

PATIENT
  Sex: Male

DRUGS (2)
  1. HUMIRA [Suspect]
     Active Substance: ADALIMUMAB
     Indication: Product used for unknown indication
     Route: 058
     Dates: start: 20220916
  2. HUMIRA [Suspect]
     Active Substance: ADALIMUMAB
     Dosage: FORM STRENGTH: 40 MILLIGRAM?CITRATE FREE
     Route: 058

REACTIONS (12)
  - Craniocerebral injury [Unknown]
  - Myalgia [Unknown]
  - Road traffic accident [Unknown]
  - Food poisoning [Recovering/Resolving]
  - Cholecystectomy [Unknown]
  - Chronic hepatitis C [Unknown]
  - Surgery [Unknown]
  - Hepatic cirrhosis [Recovering/Resolving]
  - Arthralgia [Recovering/Resolving]
  - Groin abscess [Recovering/Resolving]
  - Pain [Recovering/Resolving]
  - Joint swelling [Unknown]

NARRATIVE: CASE EVENT DATE: 20230101
